FAERS Safety Report 17883674 (Version 2)
Quarter: 2021Q4

REPORT INFORMATION
  Report Type: Spontaneous
  Country: US (occurrence: US)
  Receive Date: 20200611
  Receipt Date: 20211004
  Transmission Date: 20220303
  Serious: Yes (Death, Other)
  Sender: FDA-Public Use
  Company Number: US-SAARTEMIS-SAC202006080280

PATIENT
  Age: 37 Year
  Sex: Female

DRUGS (3)
  1. ZANTAC [Suspect]
     Active Substance: RANITIDINE HYDROCHLORIDE
     Indication: Dyspepsia
     Dosage: 150 MG, QW
     Dates: start: 201402, end: 201904
  2. ZANTAC [Suspect]
     Active Substance: RANITIDINE HYDROCHLORIDE
     Indication: Abdominal discomfort
  3. ZANTAC [Suspect]
     Active Substance: RANITIDINE HYDROCHLORIDE
     Indication: Gastrooesophageal reflux disease

REACTIONS (4)
  - Pancreatic carcinoma [Fatal]
  - Ovarian cancer [Unknown]
  - Gastrointestinal carcinoma [Unknown]
  - Hepatic cancer stage IV [Unknown]

NARRATIVE: CASE EVENT DATE: 20170101
